FAERS Safety Report 9000644 (Version 1)
Quarter: 2013Q1

REPORT INFORMATION
  Report Type: Spontaneous
  Country: US (occurrence: US)
  Receive Date: 20130107
  Receipt Date: 20130107
  Transmission Date: 20140127
  Serious: No
  Sender: FDA-Public Use
  Company Number: US-PFIZER INC-2013003433

PATIENT
  Age: 43 Year
  Sex: Female
  Weight: 90.7 kg

DRUGS (1)
  1. LYRICA [Suspect]
     Indication: FIBROMYALGIA
     Dosage: 75 MG, 2X/DAY
     Dates: end: 2012

REACTIONS (3)
  - Disturbance in attention [Not Recovered/Not Resolved]
  - Memory impairment [Not Recovered/Not Resolved]
  - Somnolence [Not Recovered/Not Resolved]
